FAERS Safety Report 5697828-7 (Version None)
Quarter: 2008Q2

REPORT INFORMATION
  Report Type: 
  Country: None (occurrence: None)
  Receive Date: 20080404
  Receipt Date: 20080404
  Transmission Date: 20081010
  Serious: Yes (Life-Threatening, Hospitalization)
  Sender: FDA-Public Use
  Company Number: None

PATIENT
  Age: 28 Year
  Sex: Female
  Weight: 92.9874 kg

DRUGS (2)
  1. GEODON [Suspect]
     Indication: BIPOLAR DISORDER
     Dosage: 40MG QD PO
     Route: 048
     Dates: start: 20080324, end: 20080401
  2. CITALOPRAM 40MG GENERIC [Suspect]
     Indication: BIPOLAR DISORDER
     Dosage: 60MG QD PO
     Route: 048
     Dates: start: 20071012, end: 20080401

REACTIONS (1)
  - ACUTE HEPATIC FAILURE [None]
